FAERS Safety Report 6607978-6 (Version None)
Quarter: 2010Q1

REPORT INFORMATION
  Report Type: 
  Country: None (occurrence: None)
  Receive Date: 20100212
  Receipt Date: 20091026
  Transmission Date: 20100710
  Serious: No
  Sender: FDA-Public Use
  Company Number: 1000009692

PATIENT
  Age: 63 Year
  Sex: Female

DRUGS (6)
  1. SAVELLA [Suspect]
     Indication: FIBROMYALGIA
     Dosage: SEE IMAGE, ORAL
     Route: 048
     Dates: start: 20091012, end: 20091012
  2. SAVELLA [Suspect]
     Indication: FIBROMYALGIA
     Dosage: SEE IMAGE, ORAL
     Route: 048
     Dates: start: 20091013, end: 20091014
  3. SAVELLA [Suspect]
     Indication: FIBROMYALGIA
     Dosage: SEE IMAGE, ORAL
     Route: 048
     Dates: start: 20091015, end: 20091018
  4. SAVELLA [Suspect]
     Indication: FIBROMYALGIA
     Dosage: SEE IMAGE, ORAL
     Route: 048
     Dates: start: 20091019
  5. KLONOPIN [Concomitant]
  6. CYTOMEL [Concomitant]

REACTIONS (5)
  - ABNORMAL DREAMS [None]
  - AGGRESSION [None]
  - BLOOD PRESSURE INCREASED [None]
  - NERVOUSNESS [None]
  - PALPITATIONS [None]
